FAERS Safety Report 8844309 (Version 1)
Quarter: 2012Q4

REPORT INFORMATION
  Report Type: 
  Country: GB (occurrence: GB)
  Receive Date: 20121017
  Receipt Date: 20121017
  Transmission Date: 20130627
  Serious: Yes (Hospitalization)
  Sender: FDA-Public Use
  Company Number: GB-JNJFOC-20121005856

PATIENT
  Sex: Male

DRUGS (2)
  1. REMICADE [Suspect]
     Indication: MYOPATHY
     Route: 042
     Dates: start: 20121004
  2. THYROXINE [Concomitant]
     Route: 065

REACTIONS (1)
  - Tachycardia [Unknown]
